FAERS Safety Report 24817668 (Version 2)
Quarter: 2025Q1

REPORT INFORMATION
  Report Type: Spontaneous
  Country: US (occurrence: US)
  Receive Date: 20250108
  Receipt Date: 20250228
  Transmission Date: 20250408
  Serious: Yes (Other)
  Sender: SANOFI AVENTIS
  Company Number: US-SA-2025SA005072

PATIENT
  Age: 65 Year
  Sex: Female
  Weight: 110.91 kg

DRUGS (1)
  1. DUPIXENT [Suspect]
     Active Substance: DUPILUMAB
     Indication: Product used for unknown indication
     Dosage: 300 MG, QOW
     Route: 058

REACTIONS (8)
  - Colitis [Unknown]
  - Ear discomfort [Unknown]
  - Heart rate irregular [Unknown]
  - Nausea [Unknown]
  - Dizziness [Unknown]
  - Headache [Unknown]
  - Diarrhoea [Unknown]
  - Dehydration [Unknown]
